FAERS Safety Report 26096863 (Version 1)
Quarter: 2025Q4

REPORT INFORMATION
  Report Type: Spontaneous
  Country: US (occurrence: US)
  Receive Date: 20251127
  Receipt Date: 20251127
  Transmission Date: 20260117
  Serious: Yes (Other)
  Sender: LOREAL
  Company Number: US-LOREAL USA SD, INC.-2025LOR00035

PATIENT
  Age: 59 Year
  Sex: Female

DRUGS (3)
  1. COSMETICS [Suspect]
     Active Substance: COSMETICS
     Dosage: UNK, ONCE, TO FACE, NECK, AND DECOLLETAGE
     Route: 061
     Dates: start: 20251017, end: 20251017
  2. COSMETICS [Suspect]
     Active Substance: COSMETICS
     Dosage: UNK, TO FACE, NECK, AND DECOLLETAGE
     Route: 061
     Dates: start: 20251016, end: 20251017
  3. COSMETICS [Suspect]
     Active Substance: COSMETICS
     Dosage: UNK, ONCE, TO FACE, NECK, AND DECOLLETAGE
     Route: 061
     Dates: start: 20251016, end: 20251016

REACTIONS (12)
  - Dyspnoea [Recovered/Resolved]
  - Heart rate increased [Recovered/Resolved]
  - Wheezing [Recovered/Resolved]
  - Pyrexia [Recovered/Resolved]
  - Rash [Recovered/Resolved]
  - Urticaria [Recovered/Resolved]
  - Erythema [Recovered/Resolved]
  - Pruritus [Recovered/Resolved]
  - Paraesthesia [Recovered/Resolved]
  - Burning sensation [Recovered/Resolved]
  - Sensitive skin [Recovered/Resolved]
  - Dilated pores [Recovered/Resolved]

NARRATIVE: CASE EVENT DATE: 20251016
